FAERS Safety Report 24740239 (Version 5)
Quarter: 2025Q1

REPORT INFORMATION
  Report Type: Report from Study
  Country: CA (occurrence: CA)
  Receive Date: 20241216
  Receipt Date: 20250220
  Transmission Date: 20250409
  Serious: Yes (Hospitalization, Other)
  Sender: JOHNSON AND JOHNSON
  Company Number: CA-JNJFOC-20241224707

PATIENT
  Age: 49 Year
  Sex: Female

DRUGS (9)
  1. EPOPROSTENOL SODIUM [Suspect]
     Active Substance: EPOPROSTENOL SODIUM
     Indication: Pulmonary hypertension
     Route: 042
     Dates: start: 20231211
  2. CHLORHEXIDINE [Suspect]
     Active Substance: CHLORHEXIDINE
     Indication: Product used for unknown indication
     Route: 065
  3. AMBRISENTAN [Concomitant]
     Active Substance: AMBRISENTAN
  4. ADCIRCA [Concomitant]
     Active Substance: TADALAFIL
  5. PERINDOPRIL [Concomitant]
     Active Substance: PERINDOPRIL
  6. LASIX [Concomitant]
     Active Substance: FUROSEMIDE
  7. VITAMIN D3 [Concomitant]
     Active Substance: CHOLECALCIFEROL
  8. CLINDAMYCIN [Concomitant]
     Active Substance: CLINDAMYCIN
  9. POTASSIUM [Concomitant]
     Active Substance: POTASSIUM

REACTIONS (3)
  - Infusion site infection [Not Recovered/Not Resolved]
  - Skin irritation [Unknown]
  - Hospitalisation [Not Recovered/Not Resolved]
